FAERS Safety Report 20866297 (Version 1)
Quarter: 2022Q2

REPORT INFORMATION
  Report Type: Spontaneous
  Country: US (occurrence: None)
  Receive Date: 20220523
  Receipt Date: 20220523
  Transmission Date: 20220721
  Serious: No
  Sender: FDA-Public Use
  Company Number: None

PATIENT
  Age: 73 Year
  Sex: Female

DRUGS (1)
  1. TYMLOS [Suspect]
     Active Substance: ABALOPARATIDE
     Indication: Senile osteoporosis
     Dosage: OTHER STRENGTH : 3120 MCG/1.56ML;?FREQUENCY : DAILY;?
     Route: 058
     Dates: start: 202103

REACTIONS (2)
  - Neck surgery [None]
  - Intentional dose omission [None]
